FAERS Safety Report 12552826 (Version 1)
Quarter: 2016Q3

REPORT INFORMATION
  Report Type: Spontaneous
  Country: CN (occurrence: CN)
  Receive Date: 20160713
  Receipt Date: 20160713
  Transmission Date: 20161109
  Serious: Yes (Other)
  Sender: FDA-Public Use
  Company Number: CN-CIPLA LTD.-2012CN00325

PATIENT

DRUGS (5)
  1. PACLITAXEL. [Suspect]
     Active Substance: PACLITAXEL
     Indication: NON-SMALL CELL LUNG CANCER
     Dosage: 150 MG/M2 ON THE FIRST DAY
     Route: 065
  2. CARBOPLATIN. [Suspect]
     Active Substance: CARBOPLATIN
     Indication: NON-SMALL CELL LUNG CANCER
     Dosage: AUC 5
     Route: 065
  3. CISPLATIN. [Suspect]
     Active Substance: CISPLATIN
     Indication: NON-SMALL CELL LUNG CANCER
     Dosage: 25 MG/M2 FROM THE SECOND DAY TO FOURTH DAY
     Route: 065
  4. ENDOSTAR [Suspect]
     Active Substance: ENDOSTATIN
     Indication: NON-SMALL CELL LUNG CANCER
     Dosage: 7.5 MG/M2 ADDED 500 ML OF NORMAL SALINE
     Route: 041
  5. NAVELBINE [Suspect]
     Active Substance: VINORELBINE TARTRATE
     Indication: NON-SMALL CELL LUNG CANCER
     Dosage: 25 MG/M2 FROM FIRST DAY AND FIFTH DAY; SECOND DAY AND FOURTH DAY
     Route: 065

REACTIONS (1)
  - Arrhythmia [Recovered/Resolved]
